FAERS Safety Report 11295508 (Version 1)
Quarter: 2015Q3

REPORT INFORMATION
  Report Type: Spontaneous
  Country: US (occurrence: None)
  Receive Date: 20150722
  Receipt Date: 20150722
  Transmission Date: 20151125
  Serious: Yes (Hospitalization)
  Sender: FDA-Public Use
  Company Number: None

PATIENT
  Age: 26 Year
  Sex: Female

DRUGS (2)
  1. CARBAMAZEPINE. [Suspect]
     Active Substance: CARBAMAZEPINE
     Indication: TRIGEMINAL NEURALGIA
     Route: 048
     Dates: start: 20101109, end: 20101112
  2. TOPIRAMATE. [Suspect]
     Active Substance: TOPIRAMATE
     Indication: MIGRAINE
     Route: 048
     Dates: start: 20101109, end: 20101112

REACTIONS (9)
  - Oral pain [None]
  - Dizziness [None]
  - Dyspnoea [None]
  - Treatment failure [None]
  - Burning sensation [None]
  - Rash generalised [None]
  - Rash pruritic [None]
  - Dysuria [None]
  - Ear pain [None]

NARRATIVE: CASE EVENT DATE: 20101110
